FAERS Safety Report 8466152-1 (Version None)
Quarter: 2012Q2

REPORT INFORMATION
  Report Type: 
  Country: None (occurrence: None)
  Receive Date: 20120626
  Receipt Date: 20120622
  Transmission Date: 20120825
  Serious: Yes (Other)
  Sender: FDA-Public Use
  Company Number: US-PFIZER INC-2012151079

PATIENT
  Sex: Male
  Weight: 95.238 kg

DRUGS (3)
  1. BENEFIX [Suspect]
     Indication: FACTOR IX DEFICIENCY
     Dosage: 4000 IU, DAILY
     Route: 042
     Dates: start: 19970101
  2. BENEFIX [Suspect]
     Dosage: 5000 IU, DAILY
     Route: 042
     Dates: start: 20120619
  3. BENEFIX [Suspect]
     Dosage: 4000 IU, DAILY
     Route: 042
     Dates: start: 20120601

REACTIONS (5)
  - GASTROOESOPHAGEAL REFLUX DISEASE [None]
  - PROSTATIC SPECIFIC ANTIGEN INCREASED [None]
  - ULCER [None]
  - HAEMARTHROSIS [None]
  - PROSTATE CANCER [None]
